FAERS Safety Report 5132051-6 (Version None)
Quarter: 2006Q4

REPORT INFORMATION
  Report Type: 
  Country: None (occurrence: None)
  Receive Date: 20061017
  Receipt Date: 20061004
  Transmission Date: 20070319
  Serious: Yes (Other)
  Sender: FDA-Public Use
  Company Number: 2006122280

PATIENT
  Sex: Female
  Weight: 61.2356 kg

DRUGS (4)
  1. NEURONTIN [Suspect]
     Indication: NEURALGIA
     Dosage: 1800 MG (600 MG, 3 IN 1 D)
     Dates: start: 20000101
  2. LYRICA [Suspect]
     Indication: NEURALGIA
     Dosage: 150 MG (75 MG, 2 IN 1 D)
     Dates: start: 20060801, end: 20060901
  3. GABAPENTIN [Suspect]
     Indication: NEURALGIA
  4. SYNTHROID [Concomitant]

REACTIONS (5)
  - BLINDNESS UNILATERAL [None]
  - DRUG INEFFECTIVE [None]
  - OPTIC NEURITIS [None]
  - PAPILLOEDEMA [None]
  - VISUAL ACUITY REDUCED [None]
